FAERS Safety Report 20536831 (Version 1)
Quarter: 2022Q1

REPORT INFORMATION
  Report Type: Spontaneous
  Country: US (occurrence: None)
  Receive Date: 20220302
  Receipt Date: 20220302
  Transmission Date: 20220423
  Serious: No
  Sender: FDA-Public Use
  Company Number: US-ROCHE-2889842

PATIENT
  Sex: Male
  Weight: 56.750 kg

DRUGS (3)
  1. NUTROPIN [Suspect]
     Active Substance: SOMATROPIN
     Indication: Growth hormone deficiency
     Dosage: TAKES SATURDAY-THURSDAY, OFF FRIDAY, ONCE AT NIGHT ?THE PATIENT TAKES A DOSE OF 2.3 OR 2.4 A DAY (U
     Route: 058
     Dates: start: 20210728
  2. NUTROPIN [Suspect]
     Active Substance: SOMATROPIN
  3. ADZENYS [Concomitant]
     Indication: Attention deficit hyperactivity disorder
     Route: 048

REACTIONS (2)
  - Product temperature excursion issue [Unknown]
  - No adverse event [Unknown]
